FAERS Safety Report 20148671 (Version 3)
Quarter: 2021Q4

REPORT INFORMATION
  Report Type: Report from Study
  Country: MX (occurrence: MX)
  Receive Date: 20211204
  Receipt Date: 20211216
  Transmission Date: 20220303
  Serious: Yes (Hospitalization, Other)
  Sender: FDA-Public Use
  Company Number: MX-NOVARTISPH-NVSC2021MX274484

PATIENT
  Sex: Male
  Weight: 80 kg

DRUGS (3)
  1. ACLASTA [Suspect]
     Active Substance: ZOLEDRONIC ACID
     Indication: Osteoporosis
     Dosage: 5 MG, Q12MO (START DATE: 4 YEARS AGO)
     Route: 042
  2. INSULIN NOS [Concomitant]
     Active Substance: INSULIN NOS
     Indication: Product used for unknown indication
     Dosage: UNK
     Route: 065
  3. FORTEO [Concomitant]
     Active Substance: TERIPARATIDE
     Indication: Product used for unknown indication
     Dosage: UNK
     Route: 065

REACTIONS (11)
  - Clavicle fracture [Unknown]
  - Rib fracture [Unknown]
  - Thrombosis [Unknown]
  - Pancreatitis [Unknown]
  - Neuropathy peripheral [Not Recovered/Not Resolved]
  - Spinal fracture [Unknown]
  - Monoparesis [Unknown]
  - Fall [Not Recovered/Not Resolved]
  - Hypoacusis [Not Recovered/Not Resolved]
  - Neoplasm [Unknown]
  - Vertigo [Unknown]
